FAERS Safety Report 17472795 (Version 1)
Quarter: 2020Q1

REPORT INFORMATION
  Report Type: Spontaneous
  Country: US (occurrence: US)
  Receive Date: 20200217
  Receipt Date: 20200217
  Transmission Date: 20200409
  Serious: No
  Sender: FDA-Public Use
  Company Number: None

PATIENT
  Age: 43 Year
  Sex: Male

DRUGS (1)
  1. METAXALONE (METAXALONE 400MG TAB) [Suspect]
     Active Substance: METAXALONE
     Indication: MUSCLE RELAXANT THERAPY

REACTIONS (1)
  - Muscle spasms [None]
